FAERS Safety Report 15059852 (Version 1)
Quarter: 2018Q2

REPORT INFORMATION
  Report Type: Spontaneous
  Country: US (occurrence: US)
  Receive Date: 20180625
  Receipt Date: 20180625
  Transmission Date: 20180711
  Serious: Yes (Other)
  Sender: FDA-Public Use
  Company Number: US-SA-2017SA255565

PATIENT
  Age: 59 Year
  Sex: Female
  Weight: 61.23 kg

DRUGS (13)
  1. DOXORUBICIN [Concomitant]
     Active Substance: DOXORUBICIN
  2. CELEBREX [Concomitant]
     Active Substance: CELECOXIB
  3. TAXOTERE [Suspect]
     Active Substance: DOCETAXEL
     Dosage: 134 MG,QCY
     Route: 051
     Dates: start: 20120608, end: 20120608
  4. TAXOTERE [Suspect]
     Active Substance: DOCETAXEL
     Indication: BREAST CANCER
     Dosage: 134 MG,QCY
     Route: 051
     Dates: start: 20120224, end: 20120224
  5. TRAZODONE [Concomitant]
     Active Substance: TRAZODONE HYDROCHLORIDE
  6. ZOFRAN [ONDANSETRON] [Concomitant]
  7. NEOSAR [Concomitant]
     Active Substance: CYCLOPHOSPHAMIDE
  8. NEULASTA [Concomitant]
     Active Substance: PEGFILGRASTIM
  9. SYNTHROID [Concomitant]
     Active Substance: LEVOTHYROXINE SODIUM
  10. DEXAMETHASONE. [Concomitant]
     Active Substance: DEXAMETHASONE
  11. LYRICA [Concomitant]
     Active Substance: PREGABALIN
  12. SINGULAIR [Concomitant]
     Active Substance: MONTELUKAST SODIUM
  13. LETROZOLE. [Concomitant]
     Active Substance: LETROZOLE

REACTIONS (6)
  - Anxiety [Unknown]
  - Emotional distress [Unknown]
  - Pain [Unknown]
  - Impaired quality of life [Unknown]
  - Alopecia [Not Recovered/Not Resolved]
  - Psychological trauma [Unknown]

NARRATIVE: CASE EVENT DATE: 20120901
